FAERS Safety Report 6455453-4 (Version None)
Quarter: 2009Q4

REPORT INFORMATION
  Report Type: 
  Country: None (occurrence: None)
  Receive Date: 20091125
  Receipt Date: 20091005
  Transmission Date: 20100525
  Serious: No
  Sender: FDA-Public Use
  Company Number: US-ABBOTT-09P-163-0601710-00

PATIENT
  Sex: Female
  Weight: 131.66 kg

DRUGS (3)
  1. SIMCOR [Suspect]
     Indication: LOW DENSITY LIPOPROTEIN INCREASED
     Dosage: 500/20
     Dates: start: 20090928
  2. METFORMIN /AVANDIA [Concomitant]
     Indication: DIABETES MELLITUS
  3. LOTREL [Concomitant]
     Indication: HYPERTENSION

REACTIONS (1)
  - CONSTIPATION [None]
